FAERS Safety Report 4721292-5 (Version None)
Quarter: 2005Q3

REPORT INFORMATION
  Report Type: 
  Country: None (occurrence: None)
  Receive Date: 20050721
  Receipt Date: 20040601
  Transmission Date: 20060218
  Serious: No
  Sender: FDA-Public Use
  Company Number: US-BRISTOL-MYERS SQUIBB COMPANY-12600599

PATIENT
  Age: 82 Year
  Sex: Female

DRUGS (3)
  1. COUMADIN [Suspect]
     Indication: ATRIAL FIBRILLATION
     Dosage: DOSAGE: INCREASED TO THREE 2MG TABLETS AND TWO 2MG TABLETS ALTERNATING DAILY
     Route: 048
     Dates: start: 20031201
  2. COUMADIN [Suspect]
     Indication: HEART RATE IRREGULAR
     Dosage: DOSAGE: INCREASED TO THREE 2MG TABLETS AND TWO 2MG TABLETS ALTERNATING DAILY
     Route: 048
     Dates: start: 20031201
  3. HYPERTENSION MEDICATION [Concomitant]
     Indication: HYPERTENSION

REACTIONS (6)
  - ANXIETY [None]
  - ASTHENIA [None]
  - DYSPNOEA [None]
  - INSOMNIA [None]
  - INTERNATIONAL NORMALISED RATIO DECREASED [None]
  - JOINT SWELLING [None]
